FAERS Safety Report 8546880-X (Version None)
Quarter: 2012Q3

REPORT INFORMATION
  Report Type: 
  Country: None (occurrence: None)
  Receive Date: 20120727
  Receipt Date: 20120116
  Transmission Date: 20120928
  Serious: No
  Sender: FDA-Public Use
  Company Number: US-ASTRAZENECA-2012SE03154

PATIENT
  Age: 62 Year
  Sex: Female

DRUGS (2)
  1. SEROQUEL [Suspect]
     Route: 048
     Dates: start: 20070217
  2. SEROQUEL [Suspect]
     Route: 048

REACTIONS (2)
  - STRESS [None]
  - DEPRESSION [None]
